FAERS Safety Report 20618293 (Version 1)
Quarter: 2022Q1

REPORT INFORMATION
  Report Type: Report from Study
  Country: US (occurrence: US)
  Receive Date: 20220321
  Receipt Date: 20220321
  Transmission Date: 20220424
  Serious: No
  Sender: FDA-Public Use
  Company Number: US-NOVARTISTESTPH-NVSC2022US064462

PATIENT
  Sex: Male

DRUGS (3)
  1. XIIDRA [Suspect]
     Active Substance: LIFITEGRAST
     Indication: Bell^s palsy
     Dosage: UNK
     Route: 065
  2. XIIDRA [Suspect]
     Active Substance: LIFITEGRAST
     Indication: Dry eye
  3. XIIDRA [Suspect]
     Active Substance: LIFITEGRAST
     Indication: Ophthalmoplegia

REACTIONS (1)
  - Eye irritation [Not Recovered/Not Resolved]
